FAERS Safety Report 9932665 (Version 1)
Quarter: 2014Q1

REPORT INFORMATION
  Report Type: Spontaneous
  Country: US (occurrence: US)
  Receive Date: 20140228
  Receipt Date: 20140228
  Transmission Date: 20141002
  Serious: No
  Sender: FDA-Public Use
  Company Number: US-GLAXOSMITHKLINE-A1019858A

PATIENT
  Age: 67 Year
  Sex: Female

DRUGS (2)
  1. SUMATRIPTAN [Suspect]
     Indication: MIGRAINE
     Dosage: 6MG AS REQUIRED
     Dates: start: 2011
  2. GSK AUTOINJECTOR [Suspect]
     Indication: MIGRAINE
     Dates: start: 2011

REACTIONS (4)
  - Injection site pain [Not Recovered/Not Resolved]
  - Procedural complication [Unknown]
  - Device malfunction [Unknown]
  - Product quality issue [Unknown]
